FAERS Safety Report 10551242 (Version 1)
Quarter: 2014Q4

REPORT INFORMATION
  Report Type: Spontaneous
  Country: US (occurrence: US)
  Receive Date: 20141029
  Receipt Date: 20141029
  Transmission Date: 20150529
  Serious: Yes (Other)
  Sender: FDA-Public Use
  Company Number: US-ASTRAZENECA-2014SE80262

PATIENT
  Age: 18906 Day
  Sex: Female
  Weight: 117.9 kg

DRUGS (2)
  1. CRESTOR [Suspect]
     Active Substance: ROSUVASTATIN CALCIUM
     Indication: BLOOD CHOLESTEROL ABNORMAL
     Dosage: DAILY
     Route: 048
     Dates: end: 201312
  2. CONCOMITANT MEDICATIONS [Concomitant]

REACTIONS (6)
  - Nerve injury [Unknown]
  - Drug dose omission [Unknown]
  - Memory impairment [Unknown]
  - Small intestinal bacterial overgrowth [Unknown]
  - Soft tissue injury [Unknown]
  - Malaise [Unknown]

NARRATIVE: CASE EVENT DATE: 20120710
